FAERS Safety Report 4402010-7 (Version None)
Quarter: 2004Q3

REPORT INFORMATION
  Report Type: 
  Country: None (occurrence: None)
  Receive Date: 20040719
  Receipt Date: 20040719
  Transmission Date: 20050211
  Serious: Yes (Hospitalization)
  Sender: FDA-Public Use
  Company Number: None

PATIENT
  Age: 76 Year
  Sex: Male
  Weight: 77.5651 kg

DRUGS (11)
  1. HYDROCHLOROTHIAZIDE 25MG TAB [Suspect]
     Indication: HYPERTENSION
     Dosage: 25 MG DAILY ORAL
     Route: 048
     Dates: start: 20040204, end: 20040430
  2. OMEPRAZOLE [Suspect]
     Indication: GASTROOESOPHAGEAL REFLUX DISEASE
     Dosage: 20 MG DAILY ORAL
     Route: 048
     Dates: start: 20040404, end: 20040430
  3. ATENOLOL [Concomitant]
  4. CYANCOBALAMIN [Concomitant]
  5. DONEPEZIL HCL [Concomitant]
  6. FLUOROURACIL [Concomitant]
  7. GEMFIBROZIL [Concomitant]
  8. NIFEDIPINE [Concomitant]
  9. PHENYLTOLOXAMINE W/ACETA [Concomitant]
  10. TERAZOSIN HCL [Concomitant]
  11. HYDROXYZINE [Concomitant]

REACTIONS (3)
  - DIARRHOEA [None]
  - GALLBLADDER ENLARGEMENT [None]
  - PANCREATITIS ACUTE [None]
